FAERS Safety Report 10842375 (Version 1)
Quarter: 2015Q1

REPORT INFORMATION
  Report Type: Spontaneous
  Country: US (occurrence: US)
  Receive Date: 20150220
  Receipt Date: 20150220
  Transmission Date: 20150721
  Serious: No
  Sender: FDA-Public Use
  Company Number: US-PFIZER INC-2015065087

PATIENT
  Sex: Female

DRUGS (2)
  1. ZITHROMAX [Suspect]
     Active Substance: AZITHROMYCIN DIHYDRATE
     Dosage: UNK
  2. ECHINACEA [Suspect]
     Active Substance: ECHINACEA, UNSPECIFIED
     Dosage: UNK

REACTIONS (2)
  - Pruritus [Unknown]
  - Drug hypersensitivity [Unknown]
